FAERS Safety Report 9855845 (Version 1)
Quarter: 2014Q1

REPORT INFORMATION
  Report Type: Spontaneous
  Country: MX (occurrence: MX)
  Receive Date: 20140130
  Receipt Date: 20140130
  Transmission Date: 20141002
  Serious: Yes (Other)
  Sender: FDA-Public Use
  Company Number: PHHY2014MX010359

PATIENT
  Age: 52 Year
  Sex: Male

DRUGS (1)
  1. TEGRETOL-XR [Suspect]
     Dosage: 2 DF (OF 400 MG), DAILY
     Route: 048
     Dates: start: 20100616

REACTIONS (2)
  - Convulsion [Not Recovered/Not Resolved]
  - Depressed mood [Not Recovered/Not Resolved]
